FAERS Safety Report 5221700-X (Version None)
Quarter: 2007Q1

REPORT INFORMATION
  Report Type: 
  Country: None (occurrence: None)
  Receive Date: 20070126
  Receipt Date: 20070126
  Transmission Date: 20070707
  Serious: Yes (Hospitalization)
  Sender: FDA-Public Use
  Company Number: None

PATIENT
  Sex: Female

DRUGS (2)
  1. DOXORUBICIN HCL [Suspect]
     Indication: BREAST CANCER
     Dosage: IV ONCE EVERY 2 WKS
     Route: 042
     Dates: start: 20070102
  2. CYCLOPHOSPHAMIDE [Suspect]
     Dosage: IV ONCE EVERY 2 WKS
     Route: 042
     Dates: start: 20070102

REACTIONS (1)
  - FEBRILE NEUTROPENIA [None]
